FAERS Safety Report 19875190 (Version 1)
Quarter: 2021Q3

REPORT INFORMATION
  Report Type: Spontaneous
  Country: CA (occurrence: CA)
  Receive Date: 20210923
  Receipt Date: 20210923
  Transmission Date: 20211014
  Serious: Yes (Life-Threatening, Hospitalization)
  Sender: FDA-Public Use
  Company Number: CA-TEVA-2021-CA-1955840

PATIENT
  Age: 9 Year
  Sex: Male
  Weight: 28 kg

DRUGS (8)
  1. VINCRISTINE SULFATE INJECTION USP [Suspect]
     Active Substance: VINCRISTINE SULFATE
     Indication: ACUTE LYMPHOCYTIC LEUKAEMIA
     Dosage: ONCE
     Route: 042
  2. DOXORUBICIN HYDROCHLORIDE INJECTION [Suspect]
     Active Substance: DOXORUBICIN HYDROCHLORIDE
     Indication: ACUTE LYMPHOCYTIC LEUKAEMIA
     Dosage: ONCE
     Route: 042
  3. ASPARAGINASE (E.COLI) [Suspect]
     Active Substance: ASPARAGINASE
     Dosage: ONCE
     Route: 030
  4. ONDANSETRON [Concomitant]
     Active Substance: ONDANSETRON
  5. ASPARAGINASE (E.COLI) [Suspect]
     Active Substance: ASPARAGINASE
     Dosage: ONCE
     Route: 030
  6. ASPARAGINASE (E.COLI) [Suspect]
     Active Substance: ASPARAGINASE
     Indication: ACUTE LYMPHOCYTIC LEUKAEMIA
     Route: 030
  7. AMLODIPINE [Concomitant]
     Active Substance: AMLODIPINE BESYLATE
  8. ZINECARD [Concomitant]
     Active Substance: DEXRAZOXANE HYDROCHLORIDE

REACTIONS (1)
  - Febrile neutropenia [Recovered/Resolved]
